FAERS Safety Report 15796141 (Version 1)
Quarter: 2019Q1

REPORT INFORMATION
  Report Type: Spontaneous
  Country: US (occurrence: US)
  Receive Date: 20190108
  Receipt Date: 20190108
  Transmission Date: 20190417
  Serious: No
  Sender: FDA-Public Use
  Company Number: US-TRIS PHARMA, INC.-2018TRISPO01456

PATIENT

DRUGS (3)
  1. DYANAVEL XR [Suspect]
     Active Substance: AMPHETAMINE
     Indication: ATTENTION DEFICIT/HYPERACTIVITY DISORDER
     Dosage: 5 ML, QD
     Route: 065
     Dates: start: 2017, end: 20181209
  2. DYANAVEL XR [Suspect]
     Active Substance: AMPHETAMINE
     Indication: ANXIETY
  3. DYANAVEL XR [Suspect]
     Active Substance: AMPHETAMINE
     Indication: LEARNING DISABILITY

REACTIONS (2)
  - Product dose omission [Not Recovered/Not Resolved]
  - Condition aggravated [Not Recovered/Not Resolved]

NARRATIVE: CASE EVENT DATE: 20181209
